FAERS Safety Report 22109987 (Version 1)
Quarter: 2023Q1

REPORT INFORMATION
  Report Type: Spontaneous
  Country: IR (occurrence: IR)
  Receive Date: 20230317
  Receipt Date: 20230317
  Transmission Date: 20230417
  Serious: Yes (Other)
  Sender: FDA-Public Use
  Company Number: IR-CPL-003297

PATIENT
  Age: 28 Year
  Sex: Female

DRUGS (1)
  1. BUPROPION [Suspect]
     Active Substance: BUPROPION
     Indication: Depression

REACTIONS (2)
  - Peptic ulcer [Recovered/Resolved]
  - Gastrointestinal haemorrhage [Unknown]
